FAERS Safety Report 8920352 (Version 1)
Quarter: 2012Q4

REPORT INFORMATION
  Report Type: 
  Country: FR (occurrence: FR)
  Receive Date: 20121122
  Receipt Date: 20121122
  Transmission Date: 20130627
  Serious: Yes (Hospitalization)
  Sender: FDA-Public Use
  Company Number: FR-ABBOTT-12P-056-1008378-00

PATIENT
  Age: 85 Year
  Sex: Female

DRUGS (1)
  1. VERCYTE [Suspect]
     Indication: ESSENTIAL THROMBOCYTHAEMIA
     Route: 048
     Dates: start: 2001, end: 201012

REACTIONS (2)
  - Myelofibrosis [Not Recovered/Not Resolved]
  - Pancytopenia [Not Recovered/Not Resolved]
